FAERS Safety Report 6811998-6 (Version None)
Quarter: 2010Q3

REPORT INFORMATION
  Report Type: 
  Country: None (occurrence: None)
  Receive Date: 20100701
  Receipt Date: 20100531
  Transmission Date: 20110219
  Serious: No
  Sender: FDA-Public Use
  Company Number: US-BAYER-201016333BCC

PATIENT
  Age: 65 Year
  Sex: Male
  Weight: 104 kg

DRUGS (6)
  1. ALEVE (CAPLET) [Suspect]
     Indication: BACK DISORDER
     Dosage: TOTAL DAILY DOSE: 220 MG  UNIT DOSE: 220 MG
     Route: 048
     Dates: start: 20100531
  2. PLAVIX [Concomitant]
     Route: 065
  3. ASPIRIN [Concomitant]
     Route: 065
  4. MICARDIS [Concomitant]
     Route: 065
  5. HYDROCHLOROTHIAZIDE [Concomitant]
     Route: 065
  6. LIPITOR [Concomitant]
     Route: 065

REACTIONS (2)
  - ERYTHEMA [None]
  - PRURITUS [None]
